FAERS Safety Report 6078075-6 (Version None)
Quarter: 2009Q1

REPORT INFORMATION
  Report Type: 
  Country: None (occurrence: None)
  Receive Date: 20090213
  Receipt Date: 20090204
  Transmission Date: 20090719
  Serious: No
  Sender: FDA-Public Use
  Company Number: GB-EISAI MEDICAL RESEARCH-E2020-04022-SPO-GB

PATIENT
  Sex: Female
  Weight: 55 kg

DRUGS (5)
  1. ARICEPT [Suspect]
     Indication: VASCULAR DEMENTIA
     Route: 048
     Dates: start: 20070301
  2. ARICEPT [Suspect]
     Route: 048
     Dates: start: 20090101
  3. UNSPECIFIED HERBAL PRODUCTS [Concomitant]
     Indication: DEMENTIA
     Route: 048
     Dates: start: 20060101
  4. CELEBREX [Concomitant]
     Indication: ARTHRALGIA
  5. UNSPECIFIED STATIN [Concomitant]

REACTIONS (10)
  - CHOKING [None]
  - COUGH [None]
  - DROOLING [None]
  - DYSPHAGIA [None]
  - HICCUPS [None]
  - IRRITABILITY [None]
  - OROPHARYNGEAL PAIN [None]
  - REGURGITATION [None]
  - RETCHING [None]
  - SALIVARY HYPERSECRETION [None]
